FAERS Safety Report 7452943-2 (Version None)
Quarter: 2011Q2

REPORT INFORMATION
  Report Type: 
  Country: None (occurrence: None)
  Receive Date: 20110502
  Receipt Date: 20110428
  Transmission Date: 20111010
  Serious: Yes (Other)
  Sender: FDA-Public Use
  Company Number: US-PFIZER INC-2010130836

PATIENT
  Sex: Female
  Weight: 67.574 kg

DRUGS (8)
  1. LYRICA [Suspect]
     Indication: ABDOMINAL PAIN UPPER
     Dosage: 50 MG, 2X/DAY
     Route: 048
     Dates: start: 20090101
  2. KLONOPIN [Concomitant]
     Dosage: UNK
  3. LYRICA [Suspect]
     Indication: NEURALGIA
     Dosage: UNK
     Dates: end: 20110426
  4. CETIRIZINE HCL AND PSEUDOEPHEDRINE [Concomitant]
     Indication: HYPERSENSITIVITY
     Dosage: UNK
  5. IBUPROFEN [Concomitant]
     Dosage: UNK
  6. LYRICA [Suspect]
     Indication: GENERALISED ANXIETY DISORDER
     Dosage: 25 MG, 2X/DAY
     Route: 048
     Dates: start: 20080101
  7. KLONOPIN [Concomitant]
     Indication: ANXIETY
     Dosage: 1 MG, 2X/DAY
  8. ZYRTEC [Concomitant]
     Indication: MYCOTIC ALLERGY
     Dosage: UNK

REACTIONS (14)
  - DRY MOUTH [None]
  - CONSTIPATION [None]
  - FEELING ABNORMAL [None]
  - WITHDRAWAL SYNDROME [None]
  - INSOMNIA [None]
  - ABDOMINAL DISTENSION [None]
  - POOR QUALITY SLEEP [None]
  - NAUSEA [None]
  - NERVOUS SYSTEM DISORDER [None]
  - WEIGHT INCREASED [None]
  - FATIGUE [None]
  - HYPOAESTHESIA [None]
  - BLOOD CHOLESTEROL INCREASED [None]
  - PARAESTHESIA [None]
